FAERS Safety Report 9253333 (Version 1)
Quarter: 2013Q2

REPORT INFORMATION
  Report Type: Spontaneous
  Country: NL (occurrence: NL)
  Receive Date: 20130424
  Receipt Date: 20130424
  Transmission Date: 20140414
  Serious: Yes (Other)
  Sender: FDA-Public Use
  Company Number: NL-009507513-1301NLD003732

PATIENT
  Age: 67 Year
  Sex: Male

DRUGS (1)
  1. SAFLUTAN [Suspect]
     Indication: GLAUCOMA
     Dosage: 1 DROPS, QD
     Route: 031
     Dates: start: 201211

REACTIONS (2)
  - Cerebral haemorrhage [Not Recovered/Not Resolved]
  - Eye pain [Not Recovered/Not Resolved]
